FAERS Safety Report 4441365-4 (Version None)
Quarter: 2004Q3

REPORT INFORMATION
  Report Type: 
  Country: None (occurrence: None)
  Receive Date: 20040728
  Receipt Date: 20040429
  Transmission Date: 20050211
  Serious: No
  Sender: FDA-Public Use
  Company Number: USA040466288

PATIENT
  Age: 15 Year
  Sex: Female
  Weight: 53 kg

DRUGS (1)
  1. STRATTERA [Suspect]
     Indication: ATTENTION DEFICIT/HYPERACTIVITY DISORDER
     Dosage: 40 MG DAY
     Dates: start: 20040428

REACTIONS (4)
  - FATIGUE [None]
  - HYPERSOMNIA [None]
  - NAUSEA [None]
  - STOMACH DISCOMFORT [None]
